FAERS Safety Report 8916898 (Version 3)
Quarter: 2012Q4

REPORT INFORMATION
  Report Type: Report from Study
  Country: FR (occurrence: FR)
  Receive Date: 20121120
  Receipt Date: 20121210
  Transmission Date: 20130627
  Serious: Yes (Hospitalization)
  Sender: FDA-Public Use
  Company Number: FR-ROCHE-1156899

PATIENT
  Age: 63 Year
  Sex: Male
  Weight: 60 kg

DRUGS (2)
  1. BEVACIZUMAB [Suspect]
     Indication: BRAIN NEOPLASM MALIGNANT
     Dosage: Most recent dose before SAE:06/Nov/2012
     Route: 042
     Dates: start: 20120724
  2. BELUSTINE [Suspect]
     Indication: BRAIN NEOPLASM MALIGNANT
     Dosage: Most recent dose before SAE: 23/Oct/2012
     Route: 048
     Dates: start: 20120724

REACTIONS (2)
  - Pain in extremity [Recovered/Resolved]
  - Muscular weakness [Recovered/Resolved]
